FAERS Safety Report 24107349 (Version 2)
Quarter: 2024Q3

REPORT INFORMATION
  Report Type: Report from Study
  Country: US (occurrence: US)
  Receive Date: 20240718
  Receipt Date: 20240813
  Transmission Date: 20241017
  Serious: No
  Sender: SANDOZ
  Company Number: US-SANDOZ-SDZ2024US044955

PATIENT
  Age: 15 Year
  Sex: Male

DRUGS (6)
  1. OMNITROPE [Suspect]
     Active Substance: SOMATROPIN
     Indication: Short stature
     Dosage: 3.3 MG, QD
     Route: 058
     Dates: start: 20240506
  2. OMNITROPE [Suspect]
     Active Substance: SOMATROPIN
     Indication: Short stature
     Dosage: 3.3 MG, QD
     Route: 058
     Dates: start: 20240506
  3. OMNITROPE [Suspect]
     Active Substance: SOMATROPIN
     Dosage: 2.8 MG, QD
     Route: 058
     Dates: start: 20240506
  4. OMNITROPE [Suspect]
     Active Substance: SOMATROPIN
     Dosage: 2.8 MG, QD
     Route: 058
     Dates: start: 20240506
  5. OMNITROPE [Suspect]
     Active Substance: SOMATROPIN
     Dosage: 10 MG, QD
     Route: 058
     Dates: start: 20240506
  6. OMNITROPE [Suspect]
     Active Substance: SOMATROPIN
     Dosage: 10 MG, QD
     Route: 058
     Dates: start: 20240506

REACTIONS (8)
  - Insomnia [Unknown]
  - Product preparation error [Unknown]
  - Product communication issue [Unknown]
  - Accidental exposure to product [Unknown]
  - Product storage error [Unknown]
  - Liquid product physical issue [Unknown]
  - Device issue [Unknown]
  - Device leakage [Unknown]

NARRATIVE: CASE EVENT DATE: 20240506
